FAERS Safety Report 21142391 (Version 1)
Quarter: 2022Q3

REPORT INFORMATION
  Report Type: Report from Study
  Country: GB (occurrence: GB)
  Receive Date: 20220728
  Receipt Date: 20220728
  Transmission Date: 20221027
  Serious: Yes (Other)
  Sender: FDA-Public Use
  Company Number: GB-ASTELLAS-2022US026540

PATIENT
  Age: 32 Year
  Sex: Male

DRUGS (7)
  1. TACROLIMUS [Suspect]
     Active Substance: TACROLIMUS
     Indication: Transaminases increased
     Dosage: (DOSES BETWEEN 4 AND 18 MG RAN DURING DAYS 22-146), ONCE DAILY
     Route: 065
  2. TACROLIMUS [Suspect]
     Active Substance: TACROLIMUS
     Route: 065
  3. TACROLIMUS [Suspect]
     Active Substance: TACROLIMUS
     Dosage: 1 MG, ONCE DAILY (TAPERING OVER DAYS 182-246)
     Route: 065
  4. PREDNISOLONE [Concomitant]
     Active Substance: PREDNISOLONE
     Indication: Transaminases increased
     Route: 065
  5. PREDNISOLONE [Concomitant]
     Active Substance: PREDNISOLONE
     Dosage: 5 MG, ONCE DAILY (TAPERED OVER DAYS 22-93)
     Route: 065
  6. PREDNISOLONE [Concomitant]
     Active Substance: PREDNISOLONE
     Route: 065
  7. PREDNISOLONE [Concomitant]
     Active Substance: PREDNISOLONE
     Dosage: 3 MG, ONCE DAILY (TAPERED OVER DAYS 182-273)
     Route: 065

REACTIONS (24)
  - Toxicity to various agents [Unknown]
  - Toxicity to various agents [Unknown]
  - Diarrhoea [Unknown]
  - Nausea [Unknown]
  - Hypomagnesaemia [Unknown]
  - Tremor [Unknown]
  - Diarrhoea [Unknown]
  - Depression [Unknown]
  - Diarrhoea [Unknown]
  - Eructation [Unknown]
  - Abdominal pain [Unknown]
  - Feeling hot [Unknown]
  - Headache [Unknown]
  - Alopecia [Unknown]
  - Decreased appetite [Unknown]
  - Paraesthesia [Unknown]
  - Fatigue [Unknown]
  - Insomnia [Unknown]
  - Nausea [Unknown]
  - Tremor [Unknown]
  - Eructation [Unknown]
  - Diarrhoea [Unknown]
  - Headache [Unknown]
  - Immunosuppressant drug level increased [Unknown]
